FAERS Safety Report 21090953 (Version 1)
Quarter: 2022Q3

REPORT INFORMATION
  Report Type: Spontaneous
  Country: FR (occurrence: FR)
  Receive Date: 20220716
  Receipt Date: 20220716
  Transmission Date: 20221027
  Serious: Yes (Other)
  Sender: FDA-Public Use
  Company Number: None

PATIENT
  Age: 81 Year
  Sex: Female

DRUGS (9)
  1. LETROZOLE [Suspect]
     Active Substance: LETROZOLE
     Indication: Breast cancer
     Dosage: 2.5 MILLIGRAM DAILY; 1 TAB 2.5 MG/DAY, THERAPY END DATE : NASK
     Dates: start: 20210305
  2. IBRANCE [Suspect]
     Active Substance: PALBOCICLIB
     Indication: Breast cancer
     Dosage: 75 MILLIGRAM DAILY; 75 MG / DAY FOR 21 DAYS THEN STOP 7 DAYS THEN RESUME, THERAPY END DATE : ASKU
     Dates: start: 20220509
  3. IBRANCE [Suspect]
     Active Substance: PALBOCICLIB
     Dosage: 100 MILLIGRAM DAILY; 100 MG / DAY FOR 21 DAYS THEN STOP 7 DAYS THEN RESUME, THERAPY END DATE : ASKU
     Dates: start: 20210305
  4. VENLAFAXINE [Concomitant]
     Active Substance: VENLAFAXINE HYDROCHLORIDE
     Indication: Antidepressant therapy
     Dosage: 75 MILLIGRAM DAILY; 1 TAB 75 MG/DAY, THERAPY START DATE AND END DATE : NASK
  5. CETIRIZINE HYDROCHLORIDE [Concomitant]
     Active Substance: CETIRIZINE HYDROCHLORIDE
     Indication: Pruritus
     Dosage: 10 MILLIGRAM DAILY; 1 TAB 10 MG/DAY, CETIRIZINE (DICHLORHYDRATE DE), THERAPY START DATE AND END DATE
  6. TRAMADOL HYDROCHLORIDE [Concomitant]
     Active Substance: TRAMADOL HYDROCHLORIDE
     Indication: Pain
     Dosage: 4 DROPS 3 X/DAY MAX 10 DROPS/DOSE, CHLORHYDRATE DE TRAMADOL, THERAPY START DATE AND END DATE : NASK,
  7. ACETAMINOPHEN [Concomitant]
     Active Substance: ACETAMINOPHEN
     Indication: Pain
     Dosage: 1 G/6H, THERAPY START DATE AND END DATE : NASK
  8. VALSARTAN [Concomitant]
     Active Substance: VALSARTAN
     Indication: Hypertension
     Dosage: 80 MILLIGRAM DAILY; 1 TAB 80 MG/DAY, THERAPY START DATE AND END DATE : NASK
  9. MOVICOL [Concomitant]
     Active Substance: POLYETHYLENE GLYCOL 3350\POTASSIUM CHLORIDE\SODIUM BICARBONATE\SODIUM CHLORIDE
     Indication: Laxative supportive care
     Dosage: 1 DOSAGE FORMS DAILY; 1 SACHET / DAY, THERAPY START DATE AND END DATE : NASK

REACTIONS (2)
  - Breast pain [Not Recovered/Not Resolved]
  - Neutropenia [Not Recovered/Not Resolved]

NARRATIVE: CASE EVENT DATE: 20220408
